FAERS Safety Report 18190951 (Version 1)
Quarter: 2020Q3

REPORT INFORMATION
  Report Type: Spontaneous
  Country: IN (occurrence: IN)
  Receive Date: 20200824
  Receipt Date: 20200824
  Transmission Date: 20201103
  Serious: Yes (Life-Threatening)
  Sender: FDA-Public Use
  Company Number: IN-FRESENIUS KABI-FK202008557

PATIENT
  Age: 62 Year
  Sex: Male

DRUGS (1)
  1. ADENOSINE INJECTION (MANUFACTURER UNKNOWN) [Suspect]
     Active Substance: ADENOSINE
     Indication: ACUTE MYOCARDIAL INFARCTION
     Dosage: TOTAL DOSE 300 MCG
     Route: 022

REACTIONS (2)
  - Respiratory failure [Recovered/Resolved]
  - Hypoxia [Recovered/Resolved]
